FAERS Safety Report 12988301 (Version 6)
Quarter: 2017Q2

REPORT INFORMATION
  Report Type: Spontaneous
  Country: KZ (occurrence: KZ)
  Receive Date: 20161130
  Receipt Date: 20170502
  Transmission Date: 20170830
  Serious: Yes (Hospitalization)
  Sender: FDA-Public Use
  Company Number: KZ-ABBVIE-16P-230-1782042-00

PATIENT
  Age: 52 Year
  Sex: Male
  Weight: 94 kg

DRUGS (1)
  1. VIEKIRA PAK [Suspect]
     Active Substance: DASABUVIR\OMBITASVIR\PARITAPREVIR\RITONAVIR
     Indication: HEPATITIS C
     Route: 048
     Dates: start: 20161111, end: 20170203

REACTIONS (11)
  - Haemorrhoids [Recovered/Resolved]
  - Chromaturia [Recovered/Resolved]
  - Constipation [Recovered/Resolved]
  - Headache [Recovered/Resolved]
  - Irritability [Recovered/Resolved]
  - Eructation [Recovering/Resolving]
  - Nausea [Recovered/Resolved]
  - Chest pain [Recovering/Resolving]
  - Epistaxis [Not Recovered/Not Resolved]
  - Hypoaesthesia [Recovering/Resolving]
  - Haemorrhoidal haemorrhage [Recovered/Resolved]

NARRATIVE: CASE EVENT DATE: 20161117
